FAERS Safety Report 9437564 (Version 1)
Quarter: 2013Q3

REPORT INFORMATION
  Report Type: Spontaneous
  Country: US (occurrence: US)
  Receive Date: 20130802
  Receipt Date: 20130802
  Transmission Date: 20140515
  Serious: Yes (Other)
  Sender: FDA-Public Use
  Company Number: US-SHIRE-ALL1-2013-05102

PATIENT
  Sex: Female
  Weight: 44.44 kg

DRUGS (11)
  1. VYVANSE [Suspect]
     Indication: ATTENTION DEFICIT/HYPERACTIVITY DISORDER
     Dosage: 50 MG, 1X/DAY:QD
     Route: 048
     Dates: start: 2011
  2. VYVANSE [Suspect]
     Dosage: 1/2 - 50 MG CAPSULE, UNKNOWN
     Route: 048
     Dates: end: 20130719
  3. DEPAKOTE [Concomitant]
     Indication: MIGRAINE
     Dosage: 500 MG, 1X/DAY:QD
     Route: 048
  4. DEPAKOTE [Concomitant]
     Indication: MOOD ALTERED
  5. METHADONE [Concomitant]
     Indication: PAIN
     Dosage: 30 MG, 3X/DAY:TID
     Route: 048
  6. CELEXA                             /00582602/ [Concomitant]
     Indication: DEPRESSION
     Dosage: 20 MG, 1X/DAY:QD
     Route: 048
  7. XANAX [Concomitant]
     Indication: ANXIETY
     Dosage: 0.5 MG, 3X/DAY:TID
     Route: 048
  8. PERCOCET                           /00446701/ [Concomitant]
     Indication: DYSMENORRHOEA
     Dosage: UNK, UNKNOWN
     Route: 065
  9. PHENERGAN                          /00033001/ [Concomitant]
     Indication: NAUSEA
     Dosage: 2 DF, AS REQ^D
     Route: 065
  10. ZOFRAN                             /00955301/ [Concomitant]
     Indication: VOMITING
     Dosage: UNK, AS REQ^D
     Route: 065
  11. FLEXERIL                           /00428402/ [Concomitant]
     Indication: MUSCLE RELAXANT THERAPY
     Dosage: 10 MG, AS REQ^D
     Route: 048

REACTIONS (8)
  - Lyme disease [Not Recovered/Not Resolved]
  - Infection [Not Recovered/Not Resolved]
  - Coordination abnormal [Recovering/Resolving]
  - Memory impairment [Recovering/Resolving]
  - Bone pain [Not Recovered/Not Resolved]
  - Fatigue [Recovering/Resolving]
  - Drug dose omission [Recovered/Resolved]
  - Wrong technique in drug usage process [Recovered/Resolved]
